FAERS Safety Report 5939035-6 (Version None)
Quarter: 2008Q4

REPORT INFORMATION
  Report Type: 
  Country: None (occurrence: None)
  Receive Date: 20081103
  Receipt Date: 20081024
  Transmission Date: 20090506
  Serious: Yes (Other)
  Sender: FDA-Public Use
  Company Number: DE-ABBOTT-08P-062-0483258-00

PATIENT
  Age: 30 Year
  Sex: Female

DRUGS (6)
  1. VALPROIC ACID [Suspect]
     Indication: DEPRESSION
     Dosage: NOT REPORTED
  2. VALPROIC ACID [Suspect]
     Dosage: NOT REPORTED
  3. PAROXETINE HCL [Suspect]
     Indication: DEPRESSION
     Dosage: NOT REPORTED
  4. AMITRIPTYLINE HCL [Suspect]
     Indication: DEPRESSION
     Dosage: NOT REPORTED
  5. ESCITALOPRAM [Concomitant]
     Indication: DRUG USE FOR UNKNOWN INDICATION
     Dosage: NOT REPORTED
  6. REBOXETINE [Concomitant]
     Indication: DRUG USE FOR UNKNOWN INDICATION
     Dosage: NOT REPORTED

REACTIONS (2)
  - DRUG TOXICITY [None]
  - GRAND MAL CONVULSION [None]
